FAERS Safety Report 21751261 (Version 1)
Quarter: 2022Q4

REPORT INFORMATION
  Report Type: Spontaneous
  Country: DE (occurrence: DE)
  Receive Date: 20221220
  Receipt Date: 20221220
  Transmission Date: 20230113
  Serious: Yes (Other)
  Sender: FDA-Public Use
  Company Number: DE-BRISTOL-MYERS SQUIBB COMPANY-2022-152776

PATIENT
  Age: 52 Year
  Sex: Female

DRUGS (5)
  1. NIVOLUMAB [Suspect]
     Active Substance: NIVOLUMAB
     Indication: Malignant melanoma
     Dates: start: 20201204, end: 20211008
  2. IPILIMUMAB [Suspect]
     Active Substance: IPILIMUMAB
     Indication: Malignant melanoma
     Dates: start: 20201204, end: 20210430
  3. DABRAFENIB [Concomitant]
     Active Substance: DABRAFENIB
     Dates: start: 202004, end: 202010
  4. TRAMETINIB [Concomitant]
     Active Substance: TRAMETINIB
     Dates: start: 202004, end: 202010
  5. AZATHIOPRINE [Concomitant]
     Active Substance: AZATHIOPRINE
     Dosage: 2 X DAILY 50 MG
     Dates: end: 202010

REACTIONS (7)
  - Immune-mediated hepatitis [Unknown]
  - Immune-mediated pancreatitis [Unknown]
  - Immune-mediated enterocolitis [Not Recovered/Not Resolved]
  - Off label use [Unknown]
  - Cushing^s syndrome [Unknown]
  - Immune-mediated arthritis [Unknown]
  - Subacute cutaneous lupus erythematosus [Unknown]

NARRATIVE: CASE EVENT DATE: 20210101
